FAERS Safety Report 9344853 (Version 3)
Quarter: 2013Q3

REPORT INFORMATION
  Report Type: Spontaneous
  Country: JP (occurrence: JP)
  Receive Date: 20130612
  Receipt Date: 20130716
  Transmission Date: 20140515
  Serious: Yes (Other)
  Sender: FDA-Public Use
  Company Number: JP-GLAXOSMITHKLINE-B0886333A

PATIENT
  Age: 76 Year
  Sex: Female

DRUGS (14)
  1. ZOVIRAX [Suspect]
     Indication: HERPES ZOSTER
     Dosage: .5MG PER DAY
     Route: 042
     Dates: start: 20130412, end: 20130413
  2. ZOVIRAX [Suspect]
     Indication: HERPES ZOSTER
     Dosage: .5MG ALTERNATE DAYS
     Route: 042
     Dates: start: 20130415, end: 20130424
  3. SARPOGRELATE HYDROCHLORIDE [Concomitant]
     Dosage: 300MG THREE TIMES PER DAY
     Route: 048
  4. SEFTAC [Concomitant]
     Dosage: 150MG THREE TIMES PER DAY
     Route: 048
  5. MIRTAZAPINE [Concomitant]
     Dosage: 15MG PER DAY
     Route: 048
  6. PLAVIX [Concomitant]
     Dosage: 75MG PER DAY
     Route: 048
  7. BAYASPIRIN [Concomitant]
     Dosage: 100MG PER DAY
     Route: 048
  8. LIVALO [Concomitant]
     Dosage: 1MG PER DAY
     Route: 048
  9. ALLELOCK [Concomitant]
     Dosage: 10MG TWICE PER DAY
     Route: 048
  10. RINGEREAZE [Concomitant]
     Dosage: 120MG TWICE PER DAY
     Route: 048
  11. AMBROXOL HYDROCHLORIDE [Concomitant]
     Dosage: 45MG THREE TIMES PER DAY
     Route: 048
  12. MINOPEN [Concomitant]
     Dosage: 100MG PER DAY
     Route: 048
  13. TAKEPRON [Concomitant]
     Dosage: 15MG PER DAY
     Route: 048
  14. LENIMEC [Concomitant]
     Dosage: 5MG PER DAY
     Route: 048

REACTIONS (4)
  - Cognitive disorder [Recovered/Resolved]
  - Amnesia [Recovered/Resolved]
  - Hallucination, visual [Recovered/Resolved]
  - Tremor [Recovered/Resolved]
